FAERS Safety Report 7638726-9 (Version None)
Quarter: 2011Q3

REPORT INFORMATION
  Report Type: 
  Country: None (occurrence: None)
  Receive Date: 20110727
  Receipt Date: 20110718
  Transmission Date: 20111222
  Serious: Yes (Other)
  Sender: FDA-Public Use
  Company Number: US-AMGEN-USASP2011036354

PATIENT
  Sex: Female

DRUGS (1)
  1. ENBREL [Suspect]
     Indication: RHEUMATOID ARTHRITIS
     Dosage: 50 MG, QWK
     Dates: start: 20110519, end: 20110707

REACTIONS (6)
  - INCREASED TENDENCY TO BRUISE [None]
  - CONTUSION [None]
  - PYREXIA [None]
  - COORDINATION ABNORMAL [None]
  - INJECTION SITE ERYTHEMA [None]
  - JOINT INJURY [None]
